FAERS Safety Report 5235805-0 (Version None)
Quarter: 2007Q1

REPORT INFORMATION
  Report Type: 
  Country: None (occurrence: None)
  Receive Date: 20070212
  Receipt Date: 20070130
  Transmission Date: 20070707
  Serious: Yes (Other)
  Sender: FDA-Public Use
  Company Number: PHBS2007BR02025

PATIENT
  Age: 86 Year
  Sex: Female

DRUGS (3)
  1. SLOW-K [Suspect]
     Indication: BLOOD POTASSIUM DECREASED
     Dates: start: 20070201
  2. SLOW-K [Suspect]
     Dosage: 600 MG/DAY
     Route: 048
  3. HIGROTON [Concomitant]
     Indication: HYPERTENSION

REACTIONS (4)
  - ASTHENIA [None]
  - CEREBROVASCULAR DISORDER [None]
  - FALL [None]
  - UPPER LIMB FRACTURE [None]
